FAERS Safety Report 8622674-1 (Version None)
Quarter: 2012Q3

REPORT INFORMATION
  Report Type: 
  Country: None (occurrence: None)
  Receive Date: 20120827
  Receipt Date: 20120813
  Transmission Date: 20120928
  Serious: Yes (Death, Life-Threatening, Hospitalization, Other)
  Sender: FDA-Public Use
  Company Number: DE-RANBAXY-2012RR-52201

PATIENT
  Age: 66 Year
  Sex: Male
  Weight: 125 kg

DRUGS (7)
  1. PANTOPRAZOLE SODIUM [Suspect]
     Indication: PRODUCT USED FOR UNKNOWN INDICATION
     Dosage: 20 MG, QD
     Route: 048
     Dates: start: 20111119, end: 20111205
  2. IBUPROFEN [Suspect]
     Indication: ARTHRALGIA
     Dosage: 1-2* 600 MG, QD
     Route: 048
     Dates: start: 20111025, end: 20111102
  3. IBUPROFEN [Suspect]
     Dosage: 1-2*800 MG, QD
     Route: 048
     Dates: start: 20111103, end: 20111208
  4. VOLTAREN [Suspect]
     Indication: ARTHRALGIA
     Dosage: NEARLY 2 TABLETS WEEKLY PER OS
     Route: 048
     Dates: start: 20111025, end: 20111116
  5. VALORON N RETARD, PFIZER [Suspect]
     Dosage: 1 DF, BID
     Route: 048
     Dates: start: 20111118, end: 20111208
  6. VALORON N RETARD, PFIZER [Suspect]
     Indication: PRODUCT USED FOR UNKNOWN INDICATION
     Dosage: 1 DF, QD
     Route: 048
     Dates: start: 20111118, end: 20111118
  7. PANTOPRAZOLE SODIUM [Suspect]
     Dosage: 40 MG, QD
     Route: 048
     Dates: start: 20111206, end: 20111208

REACTIONS (1)
  - RENAL FAILURE ACUTE [None]
